FAERS Safety Report 5648156-7 (Version None)
Quarter: 2008Q1

REPORT INFORMATION
  Report Type: 
  Country: None (occurrence: None)
  Receive Date: 20080304
  Receipt Date: 20080222
  Transmission Date: 20080703
  Serious: Yes (Other)
  Sender: FDA-Public Use
  Company Number: GB-JNJFOC-20080205344

PATIENT
  Age: 12 Year
  Sex: Female

DRUGS (1)
  1. OXYBUTYNIN CHLORIDE [Suspect]
     Indication: DRUG USE FOR UNKNOWN INDICATION
     Route: 065

REACTIONS (2)
  - GRAND MAL CONVULSION [None]
  - TONGUE BITING [None]
